FAERS Safety Report 8519973-0 (Version None)
Quarter: 2012Q2

REPORT INFORMATION
  Report Type: 
  Country: None (occurrence: None)
  Receive Date: 20120406
  Receipt Date: 20091103
  Transmission Date: 20120825
  Serious: Yes (Other)
  Sender: FDA-Public Use
  Company Number: PHEH2009US11306

PATIENT
  Sex: Female

DRUGS (10)
  1. LIPITOR [Concomitant]
  2. CALCIUM CARBONATE [Concomitant]
  3. VITAMIN TAB [Concomitant]
  4. B COMPLEX (NICOTINAMIDE, PYRIDOXINE HYDROCHLORIDE, RIBOFLAVIN, THIAMIN [Concomitant]
  5. PRILOSEC [Concomitant]
  6. TASIGNA [Suspect]
     Indication: CHRONIC MYELOID LEUKAEMIA
     Dosage: 400 MG, BID, ORAL
     Route: 048
     Dates: start: 20090729, end: 20090902
  7. SPRYCEL [Suspect]
  8. HYDROCHLOROTHIAZIDE [Concomitant]
  9. GLEEVEC [Suspect]
  10. CLARITIN [Concomitant]

REACTIONS (1)
  - THROMBOCYTOPENIA [None]
